FAERS Safety Report 9862718 (Version 2)
Quarter: 2014Q1

REPORT INFORMATION
  Report Type: Report from Study
  Country: BE (occurrence: BE)
  Receive Date: 20140203
  Receipt Date: 20140324
  Transmission Date: 20141002
  Serious: Yes (Life-Threatening, Other)
  Sender: FDA-Public Use
  Company Number: PHHY2014BE011876

PATIENT
  Age: 47 Year
  Sex: Female
  Weight: 68 kg

DRUGS (8)
  1. GLIVEC [Suspect]
     Indication: CHRONIC GRAFT VERSUS HOST DISEASE
     Dosage: 400 MG, QD
     Route: 048
     Dates: start: 201203
  2. GLIVEC [Suspect]
     Indication: OFF LABEL USE
     Dosage: 300 MG, UNK
     Dates: start: 201304
  3. GLIVEC [Suspect]
     Dosage: 200 MG, UNK
     Dates: start: 20140106
  4. GLIVEC [Suspect]
     Dosage: 100 MG, UNK
     Dates: start: 20140113, end: 20140121
  5. MEDROL [Suspect]
     Dosage: 6 MG, UNK
  6. MEDROL [Suspect]
     Dosage: 5 MG, UNK
     Dates: start: 20131230
  7. PROGRAFT [Suspect]
     Dosage: 0.5 MG, BID
  8. PROGRAFT [Suspect]
     Dosage: 0.5 MG, QD
     Dates: start: 20140130

REACTIONS (6)
  - Acute myeloid leukaemia recurrent [Recovering/Resolving]
  - Graft versus host disease [Unknown]
  - Lung disorder [Not Recovered/Not Resolved]
  - Eye disorder [Not Recovered/Not Resolved]
  - Muscle spasms [Unknown]
  - Therapeutic response decreased [Unknown]
